FAERS Safety Report 11257768 (Version 1)
Quarter: 2015Q3

REPORT INFORMATION
  Report Type: Spontaneous
  Country: US (occurrence: US)
  Receive Date: 20150710
  Receipt Date: 20150710
  Transmission Date: 20151125
  Serious: Yes (Hospitalization, Other)
  Sender: FDA-Public Use
  Company Number: US-PAR PHARMACEUTICAL, INC-2015SCPR014118

PATIENT

DRUGS (1)
  1. KETALAR [Suspect]
     Active Substance: KETAMINE HYDROCHLORIDE
     Indication: SUBSTANCE USE
     Dosage: UNK UNK, UNKNOWN
     Route: 065

REACTIONS (6)
  - Haematuria [Recovering/Resolving]
  - Hydronephrosis [Recovering/Resolving]
  - Biliary dilatation [Recovering/Resolving]
  - Blood alkaline phosphatase abnormal [Unknown]
  - Drug abuse [Unknown]
  - Alanine aminotransferase abnormal [Unknown]
